FAERS Safety Report 7029073-7 (Version None)
Quarter: 2010Q4

REPORT INFORMATION
  Report Type: 
  Country: None (occurrence: None)
  Receive Date: 20101005
  Receipt Date: 20101005
  Transmission Date: 20110411
  Serious: Yes (Other)
  Sender: FDA-Public Use
  Company Number: A0884874A

PATIENT
  Age: 89 Year
  Sex: Male

DRUGS (1)
  1. SORIATANE [Suspect]
     Indication: PROPHYLAXIS
     Route: 048

REACTIONS (5)
  - DRUG INEFFECTIVE [None]
  - NECROSIS [None]
  - OFF LABEL USE [None]
  - RECURRENT CANCER [None]
  - WOUND SECRETION [None]
